FAERS Safety Report 8247463-1 (Version None)
Quarter: 2012Q1

REPORT INFORMATION
  Report Type: 
  Country: None (occurrence: None)
  Receive Date: 20120330
  Receipt Date: 20120321
  Transmission Date: 20120608
  Serious: Yes (Death)
  Sender: FDA-Public Use
  Company Number: US-PERRIGO-12US002439

PATIENT
  Age: 48 Year
  Sex: Female

DRUGS (2)
  1. ACETAMINOPHEN [Suspect]
     Indication: PRODUCT USED FOR UNKNOWN INDICATION
     Dosage: UNK
     Route: 048
  2. IBUPROFEN [Concomitant]
     Indication: PRODUCT USED FOR UNKNOWN INDICATION
     Dosage: 800 MG, TID
     Route: 048

REACTIONS (3)
  - CARDIO-RESPIRATORY ARREST [None]
  - MULTI-ORGAN FAILURE [None]
  - TOXICITY TO VARIOUS AGENTS [None]
